FAERS Safety Report 8991226 (Version 1)
Quarter: 2012Q4

REPORT INFORMATION
  Report Type: 
  Country: US (occurrence: US)
  Receive Date: 20121231
  Receipt Date: 20121231
  Transmission Date: 20130627
  Serious: Yes (Hospitalization)
  Sender: FDA-Public Use
  Company Number: US-AMGEN-USASP2012078267

PATIENT
  Sex: Female

DRUGS (2)
  1. ENBREL [Suspect]
     Indication: RHEUMATOID ARTHRITIS
     Dosage: 50 mg, qwk
     Dates: start: 20110803, end: 201201
  2. PREDNISONE [Concomitant]
     Dosage: UNK
     Dates: start: 2010

REACTIONS (7)
  - Dyspnoea [Recovered/Resolved]
  - Localised infection [Unknown]
  - Sepsis [Recovered/Resolved]
  - Finger amputation [Recovered/Resolved]
  - Sleep apnoea syndrome [Not Recovered/Not Resolved]
  - Hypotension [Recovered/Resolved]
  - Heart rate decreased [Recovered/Resolved]
